FAERS Safety Report 9192940 (Version 1)
Quarter: 2013Q1

REPORT INFORMATION
  Report Type: Spontaneous
  Country: US (occurrence: None)
  Receive Date: 20120703
  Receipt Date: 20120703
  Transmission Date: 20140127
  Serious: Yes (Other)
  Sender: FDA-Public Use
  Company Number: PHEH2012US006879

PATIENT
  Age: 52 Year
  Sex: Female

DRUGS (14)
  1. GILENYA [Suspect]
     Indication: MULTIPLE SCLEROSIS
     Route: 048
     Dates: start: 20110804, end: 20120322
  2. CLONAZEPAM (CLONAZEPAM) (CLONAZEPAM) [Concomitant]
  3. EFEXOR XR (VENLAFAXINE) [Concomitant]
  4. ENDOCET (OXYCODONE HYDROCHLORIDE, PARACETAMOL) [Concomitant]
  5. FIORICET (BUTALBITAL,CAFFEINE,PARACETAMOL) [Concomitant]
  6. METHYLPRENISOLONE SODIUM SUCCINATE (METHYLPRENISOLONE SODIUM SUCCINATE) [Concomitant]
  7. NEXIUM (ESOMEPRAZOLE MAGNESIUM) [Concomitant]
  8. OXYBUTYNIN CHLORIDE (OXYBUTYNIN HYDROCHLORIDE) [Concomitant]
  9. OXYCONTIN (OXYCODONE HYDROCHLORIDE) [Concomitant]
  10. OXYCONTIN (OXYCODONE HYDROCHLORIDE) [Concomitant]
  11. PREMARIN (ESTROGENS CONJUGATED) [Concomitant]
  12. SINGULAIR [Concomitant]
  13. SOMA (CARISOPRODOL) [Concomitant]
  14. ZENPEP (ZENPEP) [Concomitant]

REACTIONS (1)
  - Macular oedema [None]
